FAERS Safety Report 12275755 (Version 1)
Quarter: 2016Q2

REPORT INFORMATION
  Report Type: Other
  Country: MA (occurrence: MA)
  Receive Date: 20160418
  Receipt Date: 20160418
  Transmission Date: 20160815
  Serious: Yes (Hospitalization)
  Sender: FDA-Public Use
  Company Number: MA-DEXPHARM-20160721

PATIENT

DRUGS (1)
  1. VOLTAREN [Suspect]
     Active Substance: DICLOFENAC SODIUM
     Indication: MIGRAINE
     Dosage: ONE DOSE OF VOLTAREN 75MG/3ML

REACTIONS (5)
  - Neonatal respiratory distress syndrome [Unknown]
  - Foetal arrhythmia [Unknown]
  - Medication error [Unknown]
  - Cardiac failure [Unknown]
  - Foetal distress syndrome [Unknown]
